FAERS Safety Report 24917165 (Version 3)
Quarter: 2025Q2

REPORT INFORMATION
  Report Type: Spontaneous
  Country: US (occurrence: US)
  Receive Date: 20250203
  Receipt Date: 20250530
  Transmission Date: 20250717
  Serious: Yes (Life-Threatening, Hospitalization, Other)
  Sender: AMERICAN REGENT
  Company Number: US-AMERICAN REGENT INC-2025000468

PATIENT
  Age: 50 Year
  Sex: Female
  Weight: 101.5 kg

DRUGS (60)
  1. VENOFER [Suspect]
     Active Substance: IRON SUCROSE
     Indication: Iron deficiency anaemia
     Route: 040
     Dates: start: 20240402
  2. VENOFER [Suspect]
     Active Substance: IRON SUCROSE
     Route: 065
     Dates: start: 20240819
  3. VENOFER [Suspect]
     Active Substance: IRON SUCROSE
     Route: 065
     Dates: start: 20240905
  4. VENOFER [Suspect]
     Active Substance: IRON SUCROSE
     Route: 065
     Dates: start: 20250323
  5. VENOFER [Suspect]
     Active Substance: IRON SUCROSE
     Route: 065
     Dates: start: 20250325
  6. VENOFER [Suspect]
     Active Substance: IRON SUCROSE
     Route: 065
     Dates: start: 20250322
  7. VENOFER [Suspect]
     Active Substance: IRON SUCROSE
     Route: 065
     Dates: start: 20250321
  8. VENOFER [Suspect]
     Active Substance: IRON SUCROSE
     Route: 065
     Dates: start: 20250307
  9. VENOFER [Suspect]
     Active Substance: IRON SUCROSE
     Route: 065
     Dates: start: 20250303
  10. VENOFER [Suspect]
     Active Substance: IRON SUCROSE
     Route: 065
     Dates: start: 20250128
  11. VENOFER [Suspect]
     Active Substance: IRON SUCROSE
     Route: 065
     Dates: start: 20241229
  12. VENOFER [Suspect]
     Active Substance: IRON SUCROSE
     Route: 065
     Dates: start: 20241227
  13. VENOFER [Suspect]
     Active Substance: IRON SUCROSE
     Route: 065
     Dates: start: 20241224
  14. VENOFER [Suspect]
     Active Substance: IRON SUCROSE
     Route: 065
     Dates: start: 20241221
  15. VENOFER [Suspect]
     Active Substance: IRON SUCROSE
     Route: 065
     Dates: start: 20241218
  16. VENOFER [Suspect]
     Active Substance: IRON SUCROSE
     Route: 065
     Dates: start: 20241211
  17. VENOFER [Suspect]
     Active Substance: IRON SUCROSE
     Route: 065
     Dates: start: 20241206
  18. VENOFER [Suspect]
     Active Substance: IRON SUCROSE
     Route: 065
     Dates: start: 20241204
  19. VENOFER [Suspect]
     Active Substance: IRON SUCROSE
     Route: 065
     Dates: start: 20241130
  20. VENOFER [Suspect]
     Active Substance: IRON SUCROSE
     Route: 065
     Dates: start: 20241127
  21. VENOFER [Suspect]
     Active Substance: IRON SUCROSE
     Route: 065
     Dates: start: 20250226
  22. VENOFER [Suspect]
     Active Substance: IRON SUCROSE
     Route: 065
     Dates: start: 20250219
  23. VENOFER [Suspect]
     Active Substance: IRON SUCROSE
     Route: 065
     Dates: start: 20250212
  24. VENOFER [Suspect]
     Active Substance: IRON SUCROSE
     Route: 065
     Dates: start: 20250105
  25. VENOFER [Suspect]
     Active Substance: IRON SUCROSE
     Route: 065
     Dates: start: 20250129
  26. VENOFER [Suspect]
     Active Substance: IRON SUCROSE
     Route: 065
     Dates: start: 20250122
  27. VENOFER [Suspect]
     Active Substance: IRON SUCROSE
     Route: 065
     Dates: start: 20250115
  28. VENOFER [Suspect]
     Active Substance: IRON SUCROSE
     Route: 065
     Dates: start: 20250103
  29. VENOFER [Suspect]
     Active Substance: IRON SUCROSE
     Route: 065
     Dates: start: 20241231
  30. VENOFER [Suspect]
     Active Substance: IRON SUCROSE
     Route: 065
     Dates: start: 20240916
  31. VENOFER [Suspect]
     Active Substance: IRON SUCROSE
     Route: 065
     Dates: start: 20240915
  32. VENOFER [Suspect]
     Active Substance: IRON SUCROSE
     Route: 065
     Dates: start: 20240915
  33. VENOFER [Suspect]
     Active Substance: IRON SUCROSE
     Route: 065
     Dates: start: 20240901
  34. MIRCERA [Suspect]
     Active Substance: METHOXY POLYETHYLENE GLYCOL-EPOETIN BETA
     Indication: Nephrogenic anaemia
     Route: 058
     Dates: start: 20240215, end: 20240718
  35. MIRCERA [Suspect]
     Active Substance: METHOXY POLYETHYLENE GLYCOL-EPOETIN BETA
     Route: 058
     Dates: start: 20240418
  36. MIRCERA [Suspect]
     Active Substance: METHOXY POLYETHYLENE GLYCOL-EPOETIN BETA
     Route: 058
     Dates: start: 20240516
  37. MIRCERA [Suspect]
     Active Substance: METHOXY POLYETHYLENE GLYCOL-EPOETIN BETA
     Route: 058
     Dates: start: 20240624
  38. MIRCERA [Suspect]
     Active Substance: METHOXY POLYETHYLENE GLYCOL-EPOETIN BETA
     Route: 058
     Dates: start: 20240718
  39. MIRCERA [Suspect]
     Active Substance: METHOXY POLYETHYLENE GLYCOL-EPOETIN BETA
     Route: 058
     Dates: start: 20240806
  40. MIRCERA [Suspect]
     Active Substance: METHOXY POLYETHYLENE GLYCOL-EPOETIN BETA
     Route: 058
     Dates: start: 20240815
  41. MIRCERA [Suspect]
     Active Substance: METHOXY POLYETHYLENE GLYCOL-EPOETIN BETA
     Route: 058
     Dates: start: 20240904
  42. MIRCERA [Suspect]
     Active Substance: METHOXY POLYETHYLENE GLYCOL-EPOETIN BETA
     Route: 040
     Dates: start: 20240905
  43. MIRCERA [Suspect]
     Active Substance: METHOXY POLYETHYLENE GLYCOL-EPOETIN BETA
     Route: 040
     Dates: start: 20240907
  44. MIRCERA [Suspect]
     Active Substance: METHOXY POLYETHYLENE GLYCOL-EPOETIN BETA
     Route: 040
     Dates: start: 20240919
  45. MIRCERA [Suspect]
     Active Substance: METHOXY POLYETHYLENE GLYCOL-EPOETIN BETA
     Route: 040
     Dates: start: 20241008
  46. MIRCERA [Suspect]
     Active Substance: METHOXY POLYETHYLENE GLYCOL-EPOETIN BETA
     Route: 040
     Dates: start: 20241023
  47. MIRCERA [Suspect]
     Active Substance: METHOXY POLYETHYLENE GLYCOL-EPOETIN BETA
     Route: 040
     Dates: start: 20241106, end: 20241106
  48. HEPARIN SODIUM [Concomitant]
     Active Substance: HEPARIN SODIUM
     Indication: Product used for unknown indication
     Route: 065
     Dates: start: 20241016
  49. FLUCELVAX NOS [Concomitant]
     Active Substance: INFLUENZA A VIRUS A/BRISBANE/10/2010 (H1N1) ANTIGEN (MDCK CELL DERIVED, PROPIOLACTONE INACTIVATED)\I
     Indication: Product used for unknown indication
     Route: 065
     Dates: start: 20241028, end: 20241028
  50. CALCIUM ACETATE HYDROUS [Concomitant]
     Indication: Product used for unknown indication
     Route: 065
  51. FUROSEMIDE [Concomitant]
     Active Substance: FUROSEMIDE
     Indication: Product used for unknown indication
     Route: 065
  52. FERROUS SULFATE [Concomitant]
     Active Substance: FERROUS SULFATE
     Indication: Product used for unknown indication
     Route: 065
  53. APRESOLINE HYDROCHLORIDE [Concomitant]
     Active Substance: HYDRALAZINE HYDROCHLORIDE
     Indication: Product used for unknown indication
     Route: 065
  54. LANTUS [Concomitant]
     Active Substance: INSULIN GLARGINE
     Indication: Product used for unknown indication
     Route: 065
  55. CALCITRIOL [Concomitant]
     Active Substance: CALCITRIOL
     Indication: Product used for unknown indication
     Route: 065
  56. PREGABALIN [Concomitant]
     Active Substance: PREGABALIN
     Indication: Product used for unknown indication
     Route: 065
  57. NORVASC [Concomitant]
     Active Substance: AMLODIPINE BESYLATE
     Indication: Product used for unknown indication
     Route: 065
  58. ATORVASTATIN CALCIUM [Concomitant]
     Active Substance: ATORVASTATIN CALCIUM
     Indication: Product used for unknown indication
     Route: 065
  59. CARVEDILOL [Concomitant]
     Active Substance: CARVEDILOL
     Indication: Product used for unknown indication
     Route: 065
  60. EPOGEN [Concomitant]
     Active Substance: ERYTHROPOIETIN
     Indication: Product used for unknown indication
     Route: 065
     Dates: start: 20241108

REACTIONS (3)
  - Drug hypersensitivity [Recovered/Resolved]
  - Cardiac arrest [Unknown]
  - Cardiac arrest [Unknown]

NARRATIVE: CASE EVENT DATE: 20240907
